FAERS Safety Report 5006423-4 (Version None)
Quarter: 2006Q2

REPORT INFORMATION
  Report Type: 
  Country: None (occurrence: None)
  Receive Date: 20060519
  Receipt Date: 20050826
  Transmission Date: 20061013
  Serious: Yes (Other)
  Sender: FDA-Public Use
  Company Number: 200512450JP

PATIENT
  Age: 47 Year
  Sex: Female

DRUGS (2)
  1. TAXOTERE [Suspect]
     Indication: BREAST CANCER RECURRENT
     Route: 041
  2. XELODA [Concomitant]

REACTIONS (2)
  - OEDEMA PERIPHERAL [None]
  - SCLERODERMA [None]
